FAERS Safety Report 20919293 (Version 1)
Quarter: 2022Q2

REPORT INFORMATION
  Report Type: Spontaneous
  Country: US (occurrence: None)
  Receive Date: 20220603
  Receipt Date: 20220603
  Transmission Date: 20220721
  Serious: Yes (Other)
  Sender: FDA-Public Use
  Company Number: None

PATIENT
  Age: 65 Year
  Sex: Male
  Weight: 99 kg

DRUGS (3)
  1. LEVOFLOXACIN [Suspect]
     Active Substance: LEVOFLOXACIN
     Indication: Tooth infection
     Dosage: FREQUENCY : DAILY;?
     Route: 048
  2. Coumadin Armour Thyroid Celebrex [Concomitant]
  3. VITAMIN C [Concomitant]
     Active Substance: ASCORBIC ACID

REACTIONS (2)
  - Tendonitis [None]
  - Tendon disorder [None]

NARRATIVE: CASE EVENT DATE: 20210830
